FAERS Safety Report 6018205-5 (Version None)
Quarter: 2008Q4

REPORT INFORMATION
  Report Type: 
  Country: None (occurrence: None)
  Receive Date: 20081223
  Receipt Date: 20081215
  Transmission Date: 20090506
  Serious: Yes (Other)
  Sender: FDA-Public Use
  Company Number: PHHY2008GB32045

PATIENT
  Age: 27 Year
  Sex: Female

DRUGS (3)
  1. CLOZAPINE [Suspect]
     Indication: SCHIZOPHRENIA
     Dosage: 150 MG DAILY
     Route: 048
     Dates: start: 20080910
  2. ARIPIPRAZOLE [Concomitant]
     Indication: SCHIZOPHRENIA
     Dosage: 15 MG DAILY
     Dates: start: 20080701, end: 20081110
  3. HALOPERIDOL [Concomitant]
     Indication: AGITATION
     Dosage: 5 MG PRN
     Dates: start: 20080502, end: 20080925

REACTIONS (4)
  - EPILEPSY [None]
  - FALL [None]
  - GAIT DISTURBANCE [None]
  - LOWER LIMB FRACTURE [None]
